FAERS Safety Report 9768817 (Version 2)
Quarter: 2016Q2

REPORT INFORMATION
  Report Type: Report from Study
  Country: CO (occurrence: CO)
  Receive Date: 20131218
  Receipt Date: 20160411
  Transmission Date: 20160815
  Serious: Yes (Other)
  Sender: FDA-Public Use
  Company Number: CO-ROCHE-1321726

PATIENT
  Age: 41 Year
  Sex: Female

DRUGS (1)
  1. HERCEPTIN [Suspect]
     Active Substance: TRASTUZUMAB
     Indication: BREAST CANCER
     Route: 042
     Dates: start: 20131004

REACTIONS (1)
  - Acoustic neuroma [Recovered/Resolved]

NARRATIVE: CASE EVENT DATE: 20131213
